FAERS Safety Report 7085480-8 (Version None)
Quarter: 2010Q4

REPORT INFORMATION
  Report Type: 
  Country: None (occurrence: None)
  Receive Date: 20101105
  Receipt Date: 20101102
  Transmission Date: 20110411
  Serious: Yes (Other)
  Sender: FDA-Public Use
  Company Number: GR-PFIZER INC-2010117166

PATIENT
  Age: 63 Year
  Sex: Male
  Weight: 85 kg

DRUGS (2)
  1. VIAGRA [Suspect]
     Indication: ERECTILE DYSFUNCTION
     Dosage: 50 MG, AS NEEDED
     Route: 048
     Dates: start: 20060101
  2. LIPITOR [Concomitant]
     Indication: DYSLIPIDAEMIA
     Dosage: UNK
     Route: 048

REACTIONS (1)
  - VISUAL FIELD DEFECT [None]
